FAERS Safety Report 24382442 (Version 1)
Quarter: 2024Q4

REPORT INFORMATION
  Report Type: Spontaneous
  Country: ES (occurrence: ES)
  Receive Date: 20241001
  Receipt Date: 20241001
  Transmission Date: 20250114
  Serious: Yes (Other)
  Sender: BAUSCH AND LOMB
  Company Number: ES-BAUSCH-BL-2024-014343

PATIENT
  Age: 52 Year
  Sex: Male

DRUGS (3)
  1. PRIMIDONE [Suspect]
     Active Substance: PRIMIDONE
     Indication: Tremor
     Route: 065
  2. PROPRANOLOL [Suspect]
     Active Substance: PROPRANOLOL HYDROCHLORIDE
     Indication: Tremor
     Route: 065
  3. GABAPENTIN [Suspect]
     Active Substance: GABAPENTIN
     Indication: Tremor
     Route: 065

REACTIONS (1)
  - Drug resistance [Unknown]
